FAERS Safety Report 4910500-3 (Version None)
Quarter: 2006Q1

REPORT INFORMATION
  Report Type: 
  Country: None (occurrence: None)
  Receive Date: 20060209
  Receipt Date: 20060131
  Transmission Date: 20060701
  Serious: Yes (Hospitalization, Other)
  Sender: FDA-Public Use
  Company Number: A-CH2006-11550

PATIENT
  Age: 9 Year
  Sex: Male
  Weight: 25 kg

DRUGS (7)
  1. TRACLEER [Suspect]
     Indication: PULMONARY HYPERTENSION
     Dosage: 15.625MG, BID, ORAL
     Route: 048
     Dates: start: 20050408, end: 20051216
  2. LASIX [Concomitant]
  3. ALDACTONE [Concomitant]
  4. LISINOPRIL [Concomitant]
  5. ATENOLOL [Concomitant]
  6. TIMONIL (CARBAMAZEPINE) [Concomitant]
  7. MAGNESIUM [Concomitant]

REACTIONS (12)
  - ASCITES [None]
  - CONDITION AGGRAVATED [None]
  - DILATATION ATRIAL [None]
  - DILATATION VENTRICULAR [None]
  - GAMMA-GLUTAMYLTRANSFERASE INCREASED [None]
  - LIVER DISORDER [None]
  - OEDEMA [None]
  - RIGHT VENTRICULAR SYSTOLIC PRESSURE INCREASED [None]
  - TRICUSPID VALVE INCOMPETENCE [None]
  - VASODILATATION [None]
  - VENTRICULAR DYSFUNCTION [None]
  - WEIGHT INCREASED [None]
